FAERS Safety Report 15015689 (Version 1)
Quarter: 2018Q2

REPORT INFORMATION
  Report Type: Spontaneous
  Country: US (occurrence: US)
  Receive Date: 20180615
  Receipt Date: 20180615
  Transmission Date: 20180711
  Serious: Yes (Other)
  Sender: FDA-Public Use
  Company Number: US-SA-2018SA152024

PATIENT

DRUGS (1)
  1. AMBIEN [Suspect]
     Active Substance: ZOLPIDEM TARTRATE

REACTIONS (3)
  - Retrograde amnesia [Unknown]
  - Fall [Unknown]
  - Somnambulism [Unknown]
